FAERS Safety Report 7789597-1 (Version None)
Quarter: 2011Q3

REPORT INFORMATION
  Report Type: 
  Country: None (occurrence: None)
  Receive Date: 20110930
  Receipt Date: 20110927
  Transmission Date: 20111222
  Serious: Yes (Hospitalization, Disabling, Other)
  Sender: FDA-Public Use
  Company Number: US-PFIZER INC-2010154722

PATIENT
  Sex: Female

DRUGS (3)
  1. OXYCODONE [Concomitant]
     Indication: PAIN
     Dosage: UNK
     Dates: start: 20060317
  2. CHANTIX [Suspect]
     Indication: SMOKING CESSATION THERAPY
     Dosage: 1 MG, UNK
     Dates: start: 20090701, end: 20090828
  3. ALPRAZOLAM [Concomitant]
     Indication: ANXIETY
     Dosage: UNK
     Dates: start: 20080415

REACTIONS (9)
  - ABNORMAL BEHAVIOUR [None]
  - DEPRESSION [None]
  - BIPOLAR DISORDER [None]
  - MENTAL DISORDER [None]
  - WOUND [None]
  - SUICIDE ATTEMPT [None]
  - ANXIETY [None]
  - AGGRESSION [None]
  - EMOTIONAL DISTRESS [None]
